FAERS Safety Report 22987905 (Version 2)
Quarter: 2023Q4

REPORT INFORMATION
  Report Type: Spontaneous
  Country: US (occurrence: US)
  Receive Date: 20230926
  Receipt Date: 20231215
  Transmission Date: 20240110
  Serious: No
  Sender: FDA-Public Use
  Company Number: US-SA-SAC20230921000565

PATIENT
  Age: 60 Year
  Sex: Female

DRUGS (2)
  1. NEXVIAZYME [Suspect]
     Active Substance: AVALGLUCOSIDASE ALFA-NGPT
     Indication: Glycogen storage disease type II
     Dosage: 1100 MG, QOW
     Route: 042
     Dates: start: 201309
  2. NEXVIAZYME [Suspect]
     Active Substance: AVALGLUCOSIDASE ALFA-NGPT
     Dosage: 1100 MG, QOW
     Route: 042
     Dates: start: 20230920

REACTIONS (7)
  - Constipation [Unknown]
  - Dysphagia [Unknown]
  - Gait disturbance [Unknown]
  - Back pain [Unknown]
  - Abdominal pain upper [Unknown]
  - Dyspnoea [Unknown]
  - Myalgia [Unknown]

NARRATIVE: CASE EVENT DATE: 20230101
